FAERS Safety Report 25146649 (Version 1)
Quarter: 2025Q1

REPORT INFORMATION
  Report Type: Spontaneous
  Country: US (occurrence: None)
  Receive Date: 20250331
  Receipt Date: 20250331
  Transmission Date: 20250408
  Serious: Yes (unspecified)
  Sender: FDA-CTU
  Company Number: None

PATIENT
  Age: 80 Year
  Sex: Male
  Weight: 84.82 kg

DRUGS (1)
  1. DAPTOMYCIN [Suspect]
     Active Substance: DAPTOMYCIN

REACTIONS (4)
  - Eosinophil count increased [None]
  - Dyspnoea [None]
  - Oxygen saturation decreased [None]
  - Fatigue [None]

NARRATIVE: CASE EVENT DATE: 20250326
